FAERS Safety Report 25917904 (Version 1)
Quarter: 2025Q4

REPORT INFORMATION
  Report Type: Report from Study
  Country: JP (occurrence: JP)
  Receive Date: 20251014
  Receipt Date: 20251014
  Transmission Date: 20260117
  Serious: Yes (Other)
  Sender: JOHNSON AND JOHNSON
  Company Number: JP-JNJFOC-20251017040

PATIENT

DRUGS (1)
  1. ERLEADA [Suspect]
     Active Substance: APALUTAMIDE
     Indication: Product used for unknown indication
     Dosage: DOSE UNKNOWN
     Route: 048

REACTIONS (15)
  - Skin reaction [Unknown]
  - Hepatic function abnormal [Unknown]
  - Pneumonitis [Unknown]
  - Dyspnoea [Unknown]
  - Muscle spasms [Unknown]
  - Diarrhoea [Unknown]
  - Hypertension [Unknown]
  - Adverse event [Unknown]
  - Fatigue [Unknown]
  - Decreased appetite [Unknown]
  - Hot flush [Unknown]
  - Pruritus [Unknown]
  - Oedema [Unknown]
  - Dizziness [Unknown]
  - Constipation [Unknown]
